FAERS Safety Report 4482028-9 (Version None)
Quarter: 2004Q4

REPORT INFORMATION
  Report Type: 
  Country: None (occurrence: None)
  Receive Date: 20041020
  Receipt Date: 20041001
  Transmission Date: 20050328
  Serious: Yes (Hospitalization)
  Sender: FDA-Public Use
  Company Number: DE_041014400

PATIENT
  Age: 57 Year
  Sex: Male
  Weight: 101 kg

DRUGS (11)
  1. GEMZAR [Suspect]
     Indication: NON-SMALL CELL LUNG CANCER
     Dosage: 2000 MG
     Dates: start: 20040622, end: 20040831
  2. DOCETAXEL [Suspect]
     Indication: NON-SMALL CELL LUNG CANCER
     Dosage: 150 MG
     Dates: start: 20040629, end: 20040831
  3. GRANISETRON [Concomitant]
  4. DEXAMETHASONE [Concomitant]
  5. RANITIDIN (RANITIDINE HYDROCHLORIDE) [Concomitant]
  6. CLEMASTINE [Concomitant]
  7. VERGENTAN (ALIZAPRIDE HYDROCHLORIDE) [Concomitant]
  8. TORSEMIDE [Concomitant]
  9. CLEXANE (ENOXAPARIN SODIUM) [Concomitant]
  10. METFORMIN HCL [Concomitant]
  11. AZUMETOP (METOPROLOL TARTRATE) [Concomitant]

REACTIONS (7)
  - BIOPSY SKIN ABNORMAL [None]
  - BLISTER [None]
  - DERMATITIS EXFOLIATIVE [None]
  - ERYSIPELOID [None]
  - MUCOSAL INFLAMMATION [None]
  - OEDEMA PERIPHERAL [None]
  - SCAB [None]
